FAERS Safety Report 14769920 (Version 2)
Quarter: 2018Q2

REPORT INFORMATION
  Report Type: Spontaneous
  Country: DE (occurrence: DE)
  Receive Date: 20180417
  Receipt Date: 20180507
  Transmission Date: 20180711
  Serious: Yes (Hospitalization)
  Sender: FDA-Public Use
  Company Number: DE-SA-2018SA104793

PATIENT
  Sex: Female
  Weight: 80 kg

DRUGS (5)
  1. CETIRIZINE [Concomitant]
     Active Substance: CETIRIZINE HYDROCHLORIDE
     Dosage: FREQUENCY-1-0-0
     Route: 048
     Dates: start: 20180320
  2. DECORTIN [Concomitant]
     Active Substance: PREDNISONE
     Dosage: FREQUENCY-1-0-0
     Route: 048
     Dates: start: 20180320
  3. LEMTRADA [Suspect]
     Active Substance: ALEMTUZUMAB
     Indication: MULTIPLE SCLEROSIS RELAPSE
     Route: 041
     Dates: start: 20180320, end: 20180324
  4. ACICLOVIR [Concomitant]
     Active Substance: ACYCLOVIR
     Dosage: FREQUENCY-1-0-1
     Route: 048
     Dates: start: 20180320
  5. PANTOZOL [Concomitant]
     Active Substance: PANTOPRAZOLE SODIUM
     Dosage: FREQUENCY-0-0-1
     Route: 048
     Dates: start: 20180320

REACTIONS (1)
  - Listeria sepsis [Recovering/Resolving]

NARRATIVE: CASE EVENT DATE: 20180401
